FAERS Safety Report 6483844-4 (Version None)
Quarter: 2009Q4

REPORT INFORMATION
  Report Type: 
  Country: None (occurrence: None)
  Receive Date: 20091209
  Receipt Date: 20091130
  Transmission Date: 20100525
  Serious: Yes (Hospitalization)
  Sender: FDA-Public Use
  Company Number: DE-ELI_LILLY_AND_COMPANY-DE200912000347

PATIENT
  Sex: Male
  Weight: 77 kg

DRUGS (4)
  1. GEMCITABINE HCL [Suspect]
     Indication: BILE DUCT CANCER
     Dosage: 1470 MG/M2, WEEKLY (1/W)
     Route: 042
     Dates: start: 20081104
  2. SORAFENIB [Suspect]
     Indication: BILE DUCT CANCER
     Dosage: 800 MG, DAILY (1/D)
     Route: 048
     Dates: start: 20081104
  3. TINZAPARIN [Concomitant]
     Indication: ATRIAL FIBRILLATION
     Dosage: 0.7 ML, DAILY (1/D)
     Route: 058
     Dates: start: 20090811
  4. BISOPROLOL [Concomitant]
     Indication: ATRIAL FIBRILLATION
     Dosage: 2.5 MG, UNK
     Route: 048
     Dates: start: 20090818

REACTIONS (1)
  - ATRIAL FIBRILLATION [None]
